FAERS Safety Report 20007557 (Version 1)
Quarter: 2021Q4

REPORT INFORMATION
  Report Type: Spontaneous
  Country: CN (occurrence: CN)
  Receive Date: 20211028
  Receipt Date: 20211028
  Transmission Date: 20220304
  Serious: Yes (Other)
  Sender: FDA-Public Use
  Company Number: CN-PFIZER INC-202101382712

PATIENT
  Age: 58 Year
  Sex: Male

DRUGS (2)
  1. ATORVASTATIN CALCIUM [Suspect]
     Active Substance: ATORVASTATIN CALCIUM
     Indication: Plaque shift
     Dosage: 20.000 MG, 1X/DAY
     Route: 048
     Dates: start: 20210625, end: 20210714
  2. BUTYLPHTHALIDE [Suspect]
     Active Substance: BUTYLPHTHALIDE
     Indication: Collateral circulation
     Dosage: 0.200 G, 3X/DAY
     Route: 048
     Dates: start: 20210625, end: 20210714

REACTIONS (2)
  - Liver injury [Recovering/Resolving]
  - Hepatic function abnormal [Recovering/Resolving]

NARRATIVE: CASE EVENT DATE: 20210714
